FAERS Safety Report 6023859-3 (Version None)
Quarter: 2008Q4

REPORT INFORMATION
  Report Type: 
  Country: None (occurrence: None)
  Receive Date: 20081223
  Receipt Date: 20081217
  Transmission Date: 20090506
  Serious: Yes (Hospitalization)
  Sender: FDA-Public Use
  Company Number: DSA_32943_2008

PATIENT
  Sex: Male

DRUGS (2)
  1. LORAZEPAM [Suspect]
     Dosage: (OVERDOSE AMOUNT ORAL)
     Route: 048
     Dates: start: 20081216, end: 20081216
  2. SEROQUEL [Suspect]
     Dosage: (9000 MG 1X, 30 TABLETS (OVERDOSE AMOUNT 9000 MG) ORAL)
     Route: 048
     Dates: start: 20081216, end: 20081216

REACTIONS (4)
  - GASTROINTESTINAL SOUNDS ABNORMAL [None]
  - INTENTIONAL OVERDOSE [None]
  - SUICIDE ATTEMPT [None]
  - TACHYCARDIA [None]
